FAERS Safety Report 5163746-6 (Version None)
Quarter: 2006Q4

REPORT INFORMATION
  Report Type: 
  Country: None (occurrence: None)
  Receive Date: 20061127
  Receipt Date: 20061127
  Transmission Date: 20070319
  Serious: Yes (Other)
  Sender: FDA-Public Use
  Company Number: None

PATIENT
  Age: 69 Year
  Sex: Male
  Weight: 77.1115 kg

DRUGS (1)
  1. TRAVATAN [Suspect]
     Indication: OCULAR HYPERTENSION
     Dosage: ONE DROP EACH EYE AT BEDTIME OPHTHALMIC
     Route: 047
     Dates: start: 20061107, end: 20061117

REACTIONS (5)
  - ARTHRALGIA [None]
  - COUGH [None]
  - HEADACHE [None]
  - INFLUENZA LIKE ILLNESS [None]
  - MYALGIA [None]
